FAERS Safety Report 4269449-4 (Version None)
Quarter: 2004Q1

REPORT INFORMATION
  Report Type: 
  Country: None (occurrence: None)
  Receive Date: 20040113
  Receipt Date: 20021010
  Transmission Date: 20041129
  Serious: Yes (Hospitalization)
  Sender: FDA-Public Use
  Company Number: US-ROCHE-323164

PATIENT
  Age: 78 Year
  Sex: Male
  Weight: 88.5 kg

DRUGS (9)
  1. CAPECITABINE [Suspect]
     Dosage: 500 MG AM AND 1000 MG PM.
     Route: 048
     Dates: start: 20020909, end: 20021010
  2. CAPECITABINE [Suspect]
     Dosage: 500MG AM AND 1000MG PM.
     Route: 048
     Dates: start: 20021014, end: 20021016
  3. IRINOTECAN [Suspect]
     Dosage: ON DAYS I, 8, 15, 22 A 6 WEEK CYCLE.
     Route: 042
     Dates: start: 20020909, end: 20021008
  4. IRINOTECAN [Suspect]
     Dosage: ON DAYS I, 8, 15, 22 A 6 WEEK CYCLE.
     Route: 042
     Dates: start: 20021028
  5. ZOCOR [Concomitant]
     Dosage: TOTAL DAILY DOSE REPORTED AS 10 (NO UNITS PROVIDED).
  6. COUMADIN [Concomitant]
     Dosage: TOTAL DAILY DOSE: 5 (NO UNITS PROVIDED).
  7. BETAPACE [Concomitant]
     Dosage: TOTAL DAILY DOSE: 240 (NO UNITS PROVIDED).
  8. PRILOSEC [Concomitant]
     Dosage: TOTAL DAILY DOSE: 20 (NO UNITS PROVIDED).
  9. IMDUR [Concomitant]
     Dosage: TOTAL DAILY DOSE: 90 (NO UNITS PROVIDED).

REACTIONS (2)
  - ATRIAL FIBRILLATION [None]
  - SMALL INTESTINAL OBSTRUCTION [None]
